FAERS Safety Report 14479903 (Version 1)
Quarter: 2018Q1

REPORT INFORMATION
  Report Type: Spontaneous
  Country: US (occurrence: US)
  Receive Date: 20180201
  Receipt Date: 20180201
  Transmission Date: 20180509
  Serious: No
  Sender: FDA-Public Use
  Company Number: None

PATIENT
  Age: 60 Year
  Sex: Male

DRUGS (1)
  1. IMATINIB 100MG NOVARTIS [Suspect]
     Active Substance: IMATINIB MESYLATE
     Indication: RHEUMATOID ARTHRITIS
     Route: 048
     Dates: start: 20161030

REACTIONS (4)
  - Anxiety [None]
  - Anger [None]
  - Asthenia [None]
  - Depression [None]

NARRATIVE: CASE EVENT DATE: 20180101
